FAERS Safety Report 4503927-5 (Version None)
Quarter: 2004Q4

REPORT INFORMATION
  Report Type: 
  Country: None (occurrence: None)
  Receive Date: 20041115
  Receipt Date: 20010629
  Transmission Date: 20050328
  Serious: Yes (Hospitalization)
  Sender: FDA-Public Use
  Company Number: PHO-2001-036

PATIENT
  Sex: 0

DRUGS (1)
  1. PHOTOFRIN [Suspect]
     Dosage: INTRAVENOUS
     Route: 042
     Dates: start: 20010613, end: 20010613

REACTIONS (4)
  - IATROGENIC INJURY [None]
  - OESOPHAGEAL INJURY [None]
  - PROCEDURAL COMPLICATION [None]
  - THERMAL BURN [None]
